FAERS Safety Report 4440206-9 (Version None)
Quarter: 2004Q3

REPORT INFORMATION
  Report Type: 
  Country: None (occurrence: None)
  Receive Date: 20040831
  Receipt Date: 20040819
  Transmission Date: 20050211
  Serious: Yes (Hospitalization)
  Sender: FDA-Public Use
  Company Number: 2004224703GB

PATIENT
  Age: 66 Year
  Sex: Male

DRUGS (4)
  1. CELEBREX [Suspect]
     Indication: JOINT SPRAIN
     Dosage: 100 MG, BID, ORAL
     Route: 048
     Dates: start: 20040623, end: 20040629
  2. DOMPERIDONE (DOMPERIDONE) [Concomitant]
  3. ZOPICLONE [Concomitant]
  4. OMEPRAZOLE [Concomitant]

REACTIONS (7)
  - ALANINE AMINOTRANSFERASE INCREASED [None]
  - BLOOD ALKALINE PHOSPHATASE INCREASED [None]
  - BLOOD BILIRUBIN INCREASED [None]
  - CHROMATURIA [None]
  - FAECES DISCOLOURED [None]
  - JAUNDICE [None]
  - PRURITUS [None]
